FAERS Safety Report 11623561 (Version 1)
Quarter: 2015Q4

REPORT INFORMATION
  Report Type: Spontaneous
  Country: US (occurrence: US)
  Receive Date: 20151013
  Receipt Date: 20151013
  Transmission Date: 20160304
  Serious: No
  Sender: FDA-Public Use
  Company Number: US-JNJFOC-20150914124

PATIENT
  Age: 22 Year
  Sex: Female
  Weight: 79.38 kg

DRUGS (1)
  1. TYLENOL EXTRA STRENGTH [Suspect]
     Active Substance: ACETAMINOPHEN
     Indication: NASOPHARYNGITIS
     Dosage: 2 CAPLETS A DAY FOR A WEEK.
     Route: 048
     Dates: start: 20150910, end: 20150916

REACTIONS (2)
  - Exposure during pregnancy [Unknown]
  - Product quality issue [Unknown]
